FAERS Safety Report 4944175-4 (Version None)
Quarter: 2006Q1

REPORT INFORMATION
  Report Type: 
  Country: None (occurrence: None)
  Receive Date: 20060309
  Receipt Date: 20050207
  Transmission Date: 20060701
  Serious: Yes (Hospitalization)
  Sender: FDA-Public Use
  Company Number: MED000028

PATIENT
  Age: 14 Month
  Sex: Female

DRUGS (5)
  1. 5% DEXTROSE, 0.2% SODIUM CHLORIDE AND POTASSIUM CHLORIDE INJECTIONS IN [Suspect]
     Indication: COUGH
     Dosage: 50 ML; EVERY HR; IV
     Route: 042
     Dates: start: 20050125, end: 20050126
  2. 5% DEXTROSE, 0.2% SODIUM CHLORIDE AND POTASSIUM CHLORIDE INJECTIONS IN [Suspect]
     Indication: PYREXIA
     Dosage: 50 ML; EVERY HR; IV
     Route: 042
     Dates: start: 20050125, end: 20050126
  3. SOLU-MEDROL [Concomitant]
  4. CLAFORAN [Concomitant]
  5. SOLU-MEDROL [Concomitant]

REACTIONS (6)
  - COMPARTMENT SYNDROME [None]
  - HEART RATE INCREASED [None]
  - INJECTION SITE REACTION [None]
  - NECROSIS [None]
  - RESPIRATORY RATE INCREASED [None]
  - WRONG DRUG ADMINISTERED [None]
